FAERS Safety Report 10911854 (Version 1)
Quarter: 2015Q1

REPORT INFORMATION
  Report Type: Report from Study
  Country: US (occurrence: US)
  Receive Date: 20150313
  Receipt Date: 20150313
  Transmission Date: 20150721
  Serious: Yes (Other)
  Sender: FDA-Public Use
  Company Number: US-ASTRAZENECA-2015SE00161

PATIENT
  Age: 29627 Day
  Sex: Male

DRUGS (2)
  1. BRILINTA [Suspect]
     Active Substance: TICAGRELOR
     Indication: ACUTE CORONARY SYNDROME
     Route: 048
     Dates: start: 20141206
  2. BRILINTA [Suspect]
     Active Substance: TICAGRELOR
     Indication: STENT PLACEMENT
     Route: 048
     Dates: start: 20141206

REACTIONS (11)
  - Abdominal pain [Unknown]
  - Diarrhoea [Unknown]
  - Gastrointestinal disorder [Unknown]
  - Fatigue [Unknown]
  - Abdominal discomfort [Unknown]
  - Discomfort [Unknown]
  - Haematochezia [Unknown]
  - Asthenia [Unknown]
  - Dyspnoea [Unknown]
  - Abdominal distension [Unknown]
  - Malaise [Unknown]

NARRATIVE: CASE EVENT DATE: 20141206
